FAERS Safety Report 8058246-X (Version None)
Quarter: 2012Q1

REPORT INFORMATION
  Report Type: 
  Country: None (occurrence: None)
  Receive Date: 20120112
  Receipt Date: 20120106
  Transmission Date: 20120608
  Serious: Yes (Hospitalization)
  Sender: FDA-Public Use
  Company Number: 2012SP001248

PATIENT
  Age: 66 Year
  Sex: Male
  Weight: 64 kg

DRUGS (3)
  1. TELAVIC (TELAPREVIR) (INVESTIGATIONAL DRUG) [Suspect]
     Indication: HEPATITIS C
     Dosage: 2250 MG; QD; PO
     Route: 048
     Dates: start: 20111221, end: 20111224
  2. PEG-INTRON [Suspect]
     Indication: HEPATITIS C
     Dosage: 1.5 MCG/KG; SC
     Route: 058
  3. REBETOL [Suspect]
     Indication: HEPATITIS C
     Dosage: 800 MG; QD; PO
     Route: 048

REACTIONS (2)
  - MALAISE [None]
  - ACIDOSIS [None]
